FAERS Safety Report 25475860 (Version 1)
Quarter: 2025Q2

REPORT INFORMATION
  Report Type: Spontaneous
  Country: US (occurrence: US)
  Receive Date: 20250624
  Receipt Date: 20250624
  Transmission Date: 20250717
  Serious: Yes (Death, Hospitalization, Other)
  Sender: Haleon PLC
  Company Number: US-HALEON-2248290

PATIENT
  Age: 68 Year
  Sex: Male

DRUGS (1)
  1. ACETAMINOPHEN [Suspect]
     Active Substance: ACETAMINOPHEN
     Indication: Product used for unknown indication

REACTIONS (18)
  - Acute hepatic failure [Fatal]
  - Overdose [Fatal]
  - Toxicity to various agents [Fatal]
  - Penile haemorrhage [Fatal]
  - Hypotension [Fatal]
  - Ascites [Fatal]
  - Generalised oedema [Fatal]
  - Pulse absent [Fatal]
  - Haematemesis [Fatal]
  - Faeces discoloured [Fatal]
  - Upper gastrointestinal haemorrhage [Fatal]
  - Metabolic encephalopathy [Fatal]
  - Acute hepatic failure [Fatal]
  - Renal failure [Fatal]
  - Anaemia [Fatal]
  - Abdominal hernia [Fatal]
  - Coagulopathy [Fatal]
  - Shock [Fatal]
